FAERS Safety Report 24019483 (Version 1)
Quarter: 2024Q2

REPORT INFORMATION
  Report Type: Spontaneous
  Country: JP (occurrence: JP)
  Receive Date: 20240627
  Receipt Date: 20240627
  Transmission Date: 20240715
  Serious: Yes (Life-Threatening, Hospitalization, Other)
  Sender: FDA-Public Use
  Company Number: JP-PFIZER INC-PV202400083368

PATIENT
  Age: 76 Year
  Sex: Female

DRUGS (3)
  1. LORAZEPAM [Suspect]
     Active Substance: LORAZEPAM
     Indication: Major depression
     Dosage: 1 MG
  2. DULOXETINE [Suspect]
     Active Substance: DULOXETINE
     Indication: Major depression
     Dosage: 20 MG
  3. LEMBOREXANT [Suspect]
     Active Substance: LEMBOREXANT
     Indication: Major depression
     Dosage: 5 MG
     Route: 048

REACTIONS (2)
  - Drug ineffective [Unknown]
  - Suicidal ideation [Unknown]
